FAERS Safety Report 16867905 (Version 7)
Quarter: 2021Q1

REPORT INFORMATION
  Report Type: Report from Study
  Country: GB (occurrence: GB)
  Receive Date: 20190930
  Receipt Date: 20210222
  Transmission Date: 20210419
  Serious: Yes (Hospitalization)
  Sender: FDA-Public Use
  Company Number: GB-MYLANLABS-2019M1090061

PATIENT
  Age: 48 Year
  Sex: Female

DRUGS (27)
  1. PERTUZUMAB. [Suspect]
     Active Substance: PERTUZUMAB
     Indication: BREAST CANCER METASTATIC
     Dosage: 420 MILLIGRAM, Q3W
     Route: 042
     Dates: start: 20150327, end: 20161014
  2. TRASTUZUMAB EMTANSINE [Suspect]
     Active Substance: ADO-TRASTUZUMAB EMTANSINE
     Dosage: 200 MILLIGRAM, Q3W
     Route: 042
     Dates: start: 20170224, end: 20170623
  3. TRASTUZUMAB EMTANSINE [Suspect]
     Active Substance: ADO-TRASTUZUMAB EMTANSINE
     Dosage: 164 MILLIGRAM, Q3W
     Route: 042
     Dates: start: 20171124
  4. NERATINIB [Suspect]
     Active Substance: NERATINIB
     Indication: BREAST CANCER METASTATIC
     Dosage: 240 MILLIGRAM
     Route: 048
     Dates: start: 20200122
  5. DENOSUMAB [Concomitant]
     Active Substance: DENOSUMAB
     Dosage: UNK, 6 MONTH
     Route: 058
     Dates: start: 20191220
  6. TRASTUZUMAB. [Suspect]
     Active Substance: TRASTUZUMAB
     Indication: BREAST CANCER METASTATIC
     Dosage: 451.5 MILLIGRAM, Q3W, LOADING DOSE
     Route: 042
     Dates: start: 20150305, end: 20150305
  7. TRASTUZUMAB EMTANSINE [Suspect]
     Active Substance: ADO-TRASTUZUMAB EMTANSINE
     Indication: BREAST CANCER METASTATIC
     Dosage: 240 MILLIGRAM, Q3W
     Route: 042
     Dates: start: 20161118, end: 20170127
  8. NERATINIB [Suspect]
     Active Substance: NERATINIB
     Dosage: 240 MILLIGRAM, QD
     Route: 048
     Dates: start: 20201022
  9. ITRACONAZOLE. [Concomitant]
     Active Substance: ITRACONAZOLE
     Dosage: 200 UNK
     Route: 048
     Dates: start: 20150708, end: 20150909
  10. NITROFURANTOIN. [Concomitant]
     Active Substance: NITROFURANTOIN
     Dosage: UNK
     Route: 048
     Dates: start: 20190424, end: 20190427
  11. ENOXAPARIN [Concomitant]
     Active Substance: ENOXAPARIN
     Dosage: UNK
  12. TRASTUZUMAB. [Suspect]
     Active Substance: TRASTUZUMAB
     Dosage: 346.5 MILLIGRAM, Q3W
     Route: 042
     Dates: start: 20150327, end: 20161014
  13. TRASTUZUMAB. [Suspect]
     Active Substance: TRASTUZUMAB
     Dosage: 346.5 MILLIGRAM, Q3W
     Route: 042
     Dates: start: 20150327, end: 20160122
  14. PERTUZUMAB. [Suspect]
     Active Substance: PERTUZUMAB
     Dosage: 840 MILLIGRAM, Q3W, LOADING DOSE
     Route: 042
     Dates: start: 20150305, end: 20150305
  15. ITRACONAZOLE. [Concomitant]
     Active Substance: ITRACONAZOLE
     Dosage: 400 MILLIGRAM, QD
     Route: 048
     Dates: start: 20150708, end: 20150909
  16. ENOXAPARIN                         /01708202/ [Concomitant]
     Active Substance: ENOXAPARIN SODIUM
     Dosage: 20 MILLIGRAM
     Route: 058
     Dates: start: 20170609, end: 20170613
  17. DENOSUMAB [Concomitant]
     Active Substance: DENOSUMAB
     Indication: METASTASES TO BONE
     Dosage: 1 DOSAGE FORM, MONTHLY
     Route: 058
     Dates: start: 201609
  18. ONDANSETRON [Concomitant]
     Active Substance: ONDANSETRON
     Dosage: 8 MILLIGRAM
     Route: 048
     Dates: start: 20150327, end: 20150619
  19. TRASTUZUMAB. [Suspect]
     Active Substance: TRASTUZUMAB
     Dosage: 336 MILLIGRAM, Q3W
     Route: 042
     Dates: start: 20160122
  20. CAPECITABINE. [Suspect]
     Active Substance: CAPECITABINE
     Indication: BREAST CANCER METASTATIC
     Dosage: 1300 MILLIGRAM
     Route: 048
     Dates: start: 20200120, end: 20200131
  21. DOCETAXEL. [Suspect]
     Active Substance: DOCETAXEL
     Dosage: 110 MILLIGRAM, Q3W
     Route: 042
     Dates: start: 20150327, end: 20150619
  22. TRASTUZUMAB EMTANSINE [Suspect]
     Active Substance: ADO-TRASTUZUMAB EMTANSINE
     Dosage: 180 MILLIGRAM, 3XW
     Route: 042
     Dates: start: 20170721, end: 20171103
  23. ENOXAPARIN                         /01708202/ [Concomitant]
     Active Substance: ENOXAPARIN SODIUM
     Dosage: 40 MILLIGRAM, QD
     Route: 058
     Dates: start: 20170613, end: 20170615
  24. METOCLOPRAMIDE. [Concomitant]
     Active Substance: METOCLOPRAMIDE
     Dosage: 20 MILLIGRAM
     Route: 042
     Dates: start: 20161118, end: 20161118
  25. ONDANSETRON [Concomitant]
     Active Substance: ONDANSETRON
     Dosage: 8 MILLIGRAM
     Route: 048
     Dates: start: 20161216
  26. DOCETAXEL. [Suspect]
     Active Substance: DOCETAXEL
     Indication: BREAST CANCER METASTATIC
     Dosage: 120 MILLIGRAM, Q3W
     Route: 042
     Dates: start: 20150306, end: 20150306
  27. NYSTATIN. [Concomitant]
     Active Substance: NYSTATIN
     Dosage: 1 MILLILITERX0.25 INTERVAL IN A DAY (4 ML QD)
     Route: 048
     Dates: start: 20170613, end: 20170626

REACTIONS (6)
  - Vomiting [Recovered/Resolved]
  - Nausea [Recovered/Resolved]
  - Ejection fraction decreased [Recovered/Resolved]
  - Headache [Recovering/Resolving]
  - Thirst [Recovered/Resolved]
  - Nasopharyngitis [Recovered/Resolved]

NARRATIVE: CASE EVENT DATE: 201601
